FAERS Safety Report 19218316 (Version 1)
Quarter: 2021Q2

REPORT INFORMATION
  Report Type: Spontaneous
  Country: US (occurrence: US)
  Receive Date: 20210505
  Receipt Date: 20210505
  Transmission Date: 20210717
  Serious: Yes (Other)
  Sender: FDA-Public Use
  Company Number: US-TEVA-2021-US-1907167

PATIENT
  Age: 2 Month
  Sex: Female

DRUGS (6)
  1. CALCITRIOL. [Suspect]
     Active Substance: CALCITRIOL
     Indication: HYPOCALCAEMIA
     Dosage: .15 MICROGRAM DAILY;
     Route: 048
  2. CALCITRIOL. [Suspect]
     Active Substance: CALCITRIOL
     Dosage: VARIOUS DOSES BETWEEN THE AGE OF 1 YEAR AND 9.5 YEARS
     Route: 048
  3. CALCITRIOL. [Suspect]
     Active Substance: CALCITRIOL
     Dosage: .5 MICROGRAM DAILY;
     Route: 048
  4. CALCIUM CARBONATE. [Suspect]
     Active Substance: CALCIUM CARBONATE
     Indication: HYPOCALCAEMIA
     Dosage: VARIOUS DOSES BETWEEN THE AGE OF 1 YEAR AND 9.5 YEARS
     Route: 048
  5. CALCIUM CARBONATE. [Suspect]
     Active Substance: CALCIUM CARBONATE
     Indication: MINERAL SUPPLEMENTATION
     Dosage: EQUIVALENT TO 400MG ELEMENTAL CALCIUM DAILY
     Route: 048
  6. CALCIUM CARBONATE. [Suspect]
     Active Substance: CALCIUM CARBONATE
     Dosage: EQUIVALENT TO 2000MG ELEMENTAL CALCIUM DAILY
     Route: 048

REACTIONS (3)
  - Nephrocalcinosis [Not Recovered/Not Resolved]
  - Gastrointestinal disorder [Unknown]
  - Hypercalciuria [Recovered/Resolved]
